FAERS Safety Report 16083812 (Version 1)
Quarter: 2019Q2

REPORT INFORMATION
  Report Type: Spontaneous
  Country: US (occurrence: US)
  Receive Date: 20190315
  Receipt Date: 20190315
  Transmission Date: 20190711
  Serious: Yes (Life-Threatening)
  Sender: FDA-Public Use
  Company Number: None

PATIENT
  Age: 65 Year
  Sex: Female
  Weight: 69.75 kg

DRUGS (12)
  1. LISINOPRIL. [Concomitant]
     Active Substance: LISINOPRIL
  2. LYRICA [Concomitant]
     Active Substance: PREGABALIN
  3. GABA [Concomitant]
     Active Substance: HOMEOPATHICS
  4. CLARITHROMYCIN 500MG [Suspect]
     Active Substance: CLARITHROMYCIN
     Indication: INFECTION
     Dosage: ?          QUANTITY:14 TABLET(S);?
     Route: 048
     Dates: start: 20190311, end: 20190315
  5. SYNTHROID [Concomitant]
     Active Substance: LEVOTHYROXINE SODIUM
  6. MAGNESIUM [Concomitant]
     Active Substance: MAGNESIUM
  7. CALCIUM [Concomitant]
     Active Substance: CALCIUM
  8. TIZANIDINE. [Concomitant]
     Active Substance: TIZANIDINE
  9. CITALOPRAM [Concomitant]
     Active Substance: CITALOPRAM HYDROBROMIDE
  10. VITAMIN D3 [Concomitant]
     Active Substance: CHOLECALCIFEROL
  11. TUMERIC [Concomitant]
     Active Substance: HERBALS\TURMERIC
  12. VITAMIN C [Concomitant]
     Active Substance: ASCORBIC ACID

REACTIONS (11)
  - Dysphonia [None]
  - Aphonia [None]
  - Tachycardia [None]
  - Dysstasia [None]
  - Anal incontinence [None]
  - Nausea [None]
  - Chromaturia [None]
  - Blood pressure orthostatic decreased [None]
  - Dizziness [None]
  - Fear [None]
  - Loss of consciousness [None]

NARRATIVE: CASE EVENT DATE: 20190314
